FAERS Safety Report 4534252-4 (Version None)
Quarter: 2004Q4

REPORT INFORMATION
  Report Type: 
  Country: None (occurrence: None)
  Receive Date: 20041222
  Receipt Date: 20041019
  Transmission Date: 20050328
  Serious: Yes (Other)
  Sender: FDA-Public Use
  Company Number: 200417995US

PATIENT
  Age: 40 Year
  Sex: Female
  Weight: 100.5 kg

DRUGS (6)
  1. ARAVA [Suspect]
     Indication: RHEUMATOID ARTHRITIS
     Route: 048
  2. CELEBREX [Concomitant]
  3. ATENOLOL [Concomitant]
  4. MAXZIDE [Concomitant]
  5. SSRI [Concomitant]
  6. NORVASC [Concomitant]

REACTIONS (1)
  - CUTANEOUS LUPUS ERYTHEMATOSUS [None]
